FAERS Safety Report 22705348 (Version 7)
Quarter: 2024Q2

REPORT INFORMATION
  Report Type: Report from Study
  Country: DE (occurrence: DE)
  Receive Date: 20230714
  Receipt Date: 20240418
  Transmission Date: 20240716
  Serious: Yes (Hospitalization)
  Sender: FDA-Public Use
  Company Number: DE-SA-SAC20230707000456

PATIENT
  Age: 86 Year
  Sex: Female

DRUGS (4)
  1. CEMIPLIMAB [Suspect]
     Active Substance: CEMIPLIMAB
     Indication: Actinic keratosis
     Dosage: 350 MG, Q3W
     Route: 042
     Dates: start: 20230510, end: 20230621
  2. CEMIPLIMAB [Suspect]
     Active Substance: CEMIPLIMAB
     Indication: Squamous cell carcinoma of skin
  3. TELMISARTAN [Concomitant]
     Active Substance: TELMISARTAN
     Indication: Essential hypertension
     Dosage: 80 MG, QD
     Route: 048
  4. HYDROCHLOROTHIAZIDE [Concomitant]
     Active Substance: HYDROCHLOROTHIAZIDE
     Indication: Hypertension
     Dosage: 12.5 MG, QD
     Route: 048

REACTIONS (4)
  - Cholecystitis [Recovered/Resolved]
  - Atrial fibrillation [Not Recovered/Not Resolved]
  - Tachyarrhythmia [Not Recovered/Not Resolved]
  - Off label use [Unknown]

NARRATIVE: CASE EVENT DATE: 20230630
